FAERS Safety Report 23999532 (Version 5)
Quarter: 2025Q2

REPORT INFORMATION
  Report Type: Spontaneous
  Country: IR (occurrence: IR)
  Receive Date: 20240621
  Receipt Date: 20250616
  Transmission Date: 20250716
  Serious: Yes (Life-Threatening, Other)
  Sender: PFIZER
  Company Number: IR-PFIZER INC-202400193874

PATIENT
  Age: 52 Year
  Sex: Female
  Weight: 75 kg

DRUGS (14)
  1. LINEZOLID [Interacting]
     Active Substance: LINEZOLID
     Indication: Pneumonia
     Dosage: 600 MG, TWICE A DAY
     Route: 042
  2. CLOMIPRAMINE [Interacting]
     Active Substance: CLOMIPRAMINE
     Dosage: 25 MG/DAY
     Route: 048
  3. DOXEPIN [Interacting]
     Active Substance: DOXEPIN
     Dosage: 25 MG/DAY
     Route: 048
  4. AMLODIPINE [Concomitant]
     Active Substance: AMLODIPINE BESYLATE
     Indication: Hypertension
     Dosage: 5 MG, TWICE DAILY
  5. VALSARTAN [Concomitant]
     Active Substance: VALSARTAN
     Indication: Hypertension
     Dosage: 80 MG, TWICE DAILY
  6. ALPRAZOLAM [Concomitant]
     Active Substance: ALPRAZOLAM
  7. CLONAZEPAM [Concomitant]
     Active Substance: CLONAZEPAM
     Dosage: 0.5 MG AT BEDTIME
  8. INSULIN GLARGINE [Concomitant]
     Active Substance: INSULIN GLARGINE
     Indication: Diabetes mellitus
  9. INSULIN ASPART [Concomitant]
     Active Substance: INSULIN ASPART
     Indication: Diabetes mellitus
  10. ASPIRIN [Concomitant]
     Active Substance: ASPIRIN
     Dosage: 80 MG/DAY
  11. PIPERACILLIN SODIUM\TAZOBACTAM SODIUM [Concomitant]
     Active Substance: PIPERACILLIN SODIUM\TAZOBACTAM SODIUM
     Dosage: 2.25 G, EVERY 8 HOURS
  12. PIPERACILLIN SODIUM\TAZOBACTAM SODIUM [Concomitant]
     Active Substance: PIPERACILLIN SODIUM\TAZOBACTAM SODIUM
     Dosage: 4.5 G, EVERY 8 HOURS
  13. MIDAZOLAM [Concomitant]
     Active Substance: MIDAZOLAM
  14. MORPHINE SULFATE [Concomitant]
     Active Substance: MORPHINE SULFATE

REACTIONS (3)
  - Drug interaction [Recovered/Resolved]
  - Hypertensive crisis [Recovered/Resolved]
  - Serotonin syndrome [Recovered/Resolved]
